FAERS Safety Report 4313173-6 (Version None)
Quarter: 2004Q1

REPORT INFORMATION
  Report Type: 
  Country: None (occurrence: None)
  Receive Date: 20040304
  Receipt Date: 20040225
  Transmission Date: 20041129
  Serious: Yes (Hospitalization)
  Sender: FDA-Public Use
  Company Number: US067903

PATIENT
  Age: 83 Year
  Sex: Female

DRUGS (3)
  1. ARANESP [Suspect]
     Indication: ANAEMIA
     Dosage: 200 MCG, 1 IN 2 WEEKS, SC
     Route: 058
     Dates: start: 20030508
  2. DIGOXIN [Concomitant]
  3. BETOLOL [Concomitant]

REACTIONS (4)
  - EPISTAXIS [None]
  - HEADACHE [None]
  - HYPERTENSION [None]
  - PERIPHERAL EMBOLISM [None]
